FAERS Safety Report 8456389-X (Version None)
Quarter: 2012Q2

REPORT INFORMATION
  Report Type: 
  Country: None (occurrence: None)
  Receive Date: 20120621
  Receipt Date: 20120612
  Transmission Date: 20120825
  Serious: Yes (Hospitalization)
  Sender: FDA-Public Use
  Company Number: DE-VIIV HEALTHCARE LIMITED-D0075925A

PATIENT
  Age: 63 Year
  Sex: Male

DRUGS (5)
  1. METFORMIN HCL [Concomitant]
     Route: 048
  2. ABACAVIR SULFATE/LAMIVUDINE [Suspect]
     Indication: HIV INFECTION
     Route: 048
     Dates: start: 20120430
  3. RITONAVIR [Suspect]
     Indication: HIV INFECTION
     Route: 048
     Dates: start: 20120430
  4. DARUNAVIR HYDRATE [Suspect]
     Indication: HIV INFECTION
     Route: 048
     Dates: start: 20120430
  5. BISOPROLOL FUMARATE [Concomitant]
     Route: 048

REACTIONS (1)
  - CEREBROVASCULAR ACCIDENT [None]
